FAERS Safety Report 4489157-4 (Version None)
Quarter: 2004Q4

REPORT INFORMATION
  Report Type: 
  Country: None (occurrence: None)
  Receive Date: 20041029
  Receipt Date: 20020402
  Transmission Date: 20050328
  Serious: Yes (Death, Other)
  Sender: FDA-Public Use
  Company Number: US-AMGEN-US011208

PATIENT
  Age: 73 Year
  Sex: Male

DRUGS (5)
  1. PROCRIT [Suspect]
     Indication: ANAEMIA OF MALIGNANT DISEASE
     Dates: start: 20000801, end: 20001031
  2. CARBOPLATIN [Concomitant]
     Route: 042
     Dates: start: 20000706, end: 20000728
  3. TAXOL [Concomitant]
     Route: 042
     Dates: start: 20000604, end: 20000728
  4. COLCHICINE [Concomitant]
     Route: 048
     Dates: start: 20000301
  5. NORVASC [Concomitant]
     Route: 048
     Dates: start: 20000301

REACTIONS (3)
  - APLASIA PURE RED CELL [None]
  - DEATH [None]
  - DRUG INEFFECTIVE [None]
